FAERS Safety Report 9496548 (Version 1)
Quarter: 2013Q3

REPORT INFORMATION
  Report Type: Spontaneous
  Country: US (occurrence: None)
  Receive Date: 20130829
  Receipt Date: 20130829
  Transmission Date: 20140515
  Serious: Yes (Hospitalization, Other)
  Sender: FDA-Public Use
  Company Number: 150722

PATIENT
  Age: 59 Year
  Sex: Female

DRUGS (1)
  1. CERUBIDINE [Suspect]
     Indication: ACUTE MYELOID LEUKAEMIA
     Route: 042

REACTIONS (2)
  - Thrombocytopenia [None]
  - Staphylococcal sepsis [None]
